FAERS Safety Report 13822755 (Version 1)
Quarter: 2017Q3

REPORT INFORMATION
  Report Type: Spontaneous
  Country: GB (occurrence: GB)
  Receive Date: 20170801
  Receipt Date: 20170801
  Transmission Date: 20171127
  Serious: Yes (Other)
  Sender: FDA-Public Use
  Company Number: GB-TEVA-790039ACC

PATIENT
  Sex: Male

DRUGS (1)
  1. OFLOXACIN HYDROCHLORIDE [Suspect]
     Active Substance: OFLOXACIN HYDROCHLORIDE
     Route: 065
     Dates: start: 20170710

REACTIONS (3)
  - Cold sweat [Not Recovered/Not Resolved]
  - Skin warm [Unknown]
  - Palpitations [Not Recovered/Not Resolved]
